FAERS Safety Report 15158417 (Version 1)
Quarter: 2018Q3

REPORT INFORMATION
  Report Type: Spontaneous
  Country: US (occurrence: US)
  Receive Date: 20180620
  Receipt Date: 20180620
  Transmission Date: 20181010
  Serious: Yes (Life-Threatening, Hospitalization, Other)
  Sender: FDA-Public Use
  Company Number: None

PATIENT
  Age: 76 Year
  Sex: Female
  Weight: 67.4 kg

DRUGS (3)
  1. PIOGLITAZONE 30 MG [Concomitant]
     Active Substance: PIOGLITAZONE
     Dates: start: 20180601, end: 20180615
  2. TOUJEO [Suspect]
     Active Substance: INSULIN GLARGINE
     Indication: THERAPY CHANGE
     Route: 058
  3. GLIMEPIRIDE 4 MG [Concomitant]
     Active Substance: GLIMEPIRIDE
     Dates: start: 20180601, end: 20180615

REACTIONS (2)
  - Hyperglycaemia [None]
  - Product substitution issue [None]

NARRATIVE: CASE EVENT DATE: 20180615
